FAERS Safety Report 5430832-2 (Version None)
Quarter: 2007Q3

REPORT INFORMATION
  Report Type: 
  Country: None (occurrence: None)
  Receive Date: 20070830
  Receipt Date: 20061208
  Transmission Date: 20080115
  Serious: No
  Sender: FDA-Public Use
  Company Number: A0630928A

PATIENT
  Age: 52 Year
  Sex: Male

DRUGS (5)
  1. WELLBUTRIN XL [Suspect]
     Indication: DEPRESSION
     Dosage: 150MG PER DAY
     Route: 048
     Dates: start: 20061201
  2. CARDURA [Concomitant]
  3. AVAPRO [Concomitant]
  4. TYLENOL [Concomitant]
  5. AMBIEN [Concomitant]

REACTIONS (2)
  - INSOMNIA [None]
  - NAUSEA [None]
